FAERS Safety Report 8838017 (Version 1)
Quarter: 2012Q4

REPORT INFORMATION
  Report Type: 
  Country: NO (occurrence: NO)
  Receive Date: 20121012
  Receipt Date: 20121012
  Transmission Date: 20130627
  Serious: Yes (Hospitalization)
  Sender: FDA-Public Use
  Company Number: NO-ABBOTT-12P-122-0990908-00

PATIENT
  Sex: Male

DRUGS (1)
  1. HUMIRA [Suspect]
     Indication: BLAU SYNDROME
     Route: 058
     Dates: start: 2011

REACTIONS (7)
  - Demyelination [Recovering/Resolving]
  - Nausea [Unknown]
  - Dizziness [Unknown]
  - Nasopharyngitis [Unknown]
  - Pyrexia [Unknown]
  - Burning sensation [Unknown]
  - Hypoaesthesia [Unknown]
